FAERS Safety Report 18585806 (Version 1)
Quarter: 2020Q4

REPORT INFORMATION
  Report Type: Spontaneous
  Country: US (occurrence: US)
  Receive Date: 20201206
  Receipt Date: 20201206
  Transmission Date: 20210114
  Serious: Yes (Other)
  Sender: FDA-Public Use
  Company Number: None

PATIENT
  Age: 67 Year
  Sex: Female
  Weight: 78.75 kg

DRUGS (14)
  1. MAALOX ANTACID [Suspect]
     Active Substance: ALUMINUM HYDROXIDE\DIMETHICONE\MAGNESIUM HYDROXIDE
  2. METFORMIN [Concomitant]
     Active Substance: METFORMIN HYDROCHLORIDE
  3. MYRBETRIQ [Concomitant]
     Active Substance: MIRABEGRON
  4. COENZYME Q10 [Concomitant]
     Active Substance: DIETARY SUPPLEMENT\UBIDECARENONE
  5. EFFEXER 75MG [Concomitant]
  6. VIT D 2000IU? [Concomitant]
  7. JARDIANCE [Suspect]
     Active Substance: EMPAGLIFLOZIN
     Indication: TYPE 2 DIABETES MELLITUS
     Dosage: ?          QUANTITY:30 CAPSULE(S);?
     Route: 048
  8. TRIAMTERINE HCTZ [Concomitant]
  9. TINZANIDINE 4MG [Concomitant]
  10. ASA 81MG [Concomitant]
     Active Substance: ASPIRIN
  11. IBERSARTAN 300MG [Concomitant]
  12. PROPANALOL ER 120MG [Concomitant]
  13. GABEPENTIN 300MG [Concomitant]
  14. SIMVASTIN 20MG [Concomitant]

REACTIONS (7)
  - Diarrhoea [None]
  - Rash [None]
  - Chest pain [None]
  - Discomfort [None]
  - Gastrooesophageal reflux disease [None]
  - Drug ineffective [None]
  - Pruritus [None]

NARRATIVE: CASE EVENT DATE: 20201205
